FAERS Safety Report 19031630 (Version 1)
Quarter: 2021Q1

REPORT INFORMATION
  Report Type: Spontaneous
  Country: US (occurrence: US)
  Receive Date: 20210319
  Receipt Date: 20210319
  Transmission Date: 20210420
  Serious: Yes (Hospitalization)
  Sender: FDA-Public Use
  Company Number: None

PATIENT
  Age: 59 Year
  Sex: Male

DRUGS (6)
  1. ABI RATERONE [Concomitant]
     Dates: start: 20210217
  2. MULTI?W/ TAB MINERALS [Concomitant]
     Dates: start: 20210217
  3. PREDNISONE. [Concomitant]
     Active Substance: PREDNISONE
     Dates: start: 20210217
  4. IBUPROFEN TAB 800 MG [Concomitant]
     Dates: start: 20210217
  5. ABIRATERONE. [Suspect]
     Active Substance: ABIRATERONE ACETATE
     Indication: PROSTATE CANCER
     Route: 048
     Dates: start: 20210217
  6. CALCIUM 500 TAB+D [Concomitant]
     Dates: start: 20210217

REACTIONS (1)
  - Brain neoplasm [None]

NARRATIVE: CASE EVENT DATE: 20210318
